FAERS Safety Report 24120713 (Version 8)
Quarter: 2025Q1

REPORT INFORMATION
  Report Type: Spontaneous
  Country: US (occurrence: US)
  Receive Date: 20240722
  Receipt Date: 20250310
  Transmission Date: 20250409
  Serious: Yes (Hospitalization, Other)
  Sender: BIOVITRUM
  Company Number: US-BIOVITRUM-2024-US-009474

PATIENT
  Age: 71 Year
  Sex: Female

DRUGS (5)
  1. VONJO [Suspect]
     Active Substance: PACRITINIB
     Indication: Haematopoietic neoplasm
     Route: 048
     Dates: start: 20240625
  2. VONJO [Suspect]
     Active Substance: PACRITINIB
     Route: 048
  3. VONJO [Suspect]
     Active Substance: PACRITINIB
  4. VONJO [Suspect]
     Active Substance: PACRITINIB
     Route: 048
     Dates: start: 20240625
  5. BESREMI [Concomitant]
     Active Substance: ROPEGINTERFERON ALFA-2B-NJFT
     Indication: Product used for unknown indication

REACTIONS (25)
  - Pneumonia [Unknown]
  - Fall [Unknown]
  - Peripheral swelling [Unknown]
  - Localised infection [Unknown]
  - Pulmonary oedema [Unknown]
  - Myelofibrosis [Unknown]
  - Condition aggravated [Unknown]
  - Weight decreased [Unknown]
  - Platelet count decreased [Unknown]
  - Red blood cell count decreased [Unknown]
  - Decreased immune responsiveness [Unknown]
  - Depression [Unknown]
  - White blood cell count decreased [Unknown]
  - Oedema [Unknown]
  - Off label use [Not Recovered/Not Resolved]
  - Product dose omission issue [Unknown]
  - Dizziness [Unknown]
  - Red blood cell count abnormal [Unknown]
  - Diarrhoea [Unknown]
  - Constipation [Unknown]
  - Headache [Unknown]
  - Malaise [Unknown]
  - Rhinorrhoea [Unknown]
  - Cough [Unknown]
  - Gait disturbance [Unknown]

NARRATIVE: CASE EVENT DATE: 20240625
